FAERS Safety Report 16713567 (Version 1)
Quarter: 2019Q3

REPORT INFORMATION
  Report Type: Other
  Country: GB (occurrence: GB)
  Receive Date: 20190819
  Receipt Date: 20190819
  Transmission Date: 20191004
  Serious: Yes (Disabling)
  Sender: FDA-Public Use
  Company Number: GB-GLENMARK PHARMACEUTICALS-2019GMK042625

PATIENT

DRUGS (20)
  1. LAXIDO                             /06401201/ [Concomitant]
     Active Substance: POLYETHYLENE GLYCOL 3350\POTASSIUM CHLORIDE\SODIUM BICARBONATE\SODIUM CHLORIDE
     Indication: PRODUCT USED FOR UNKNOWN INDICATION
     Dosage: 1 DF, HS (AT NIGHT)
     Route: 065
     Dates: start: 20190305
  2. METFORMIN [Concomitant]
     Active Substance: METFORMIN HYDROCHLORIDE
     Indication: PRODUCT USED FOR UNKNOWN INDICATION
     Dosage: 1 DF, OD
     Route: 065
     Dates: start: 20190305, end: 20190718
  3. SALBUTAMOL [Concomitant]
     Active Substance: ALBUTEROL
     Indication: PRODUCT USED FOR UNKNOWN INDICATION
     Dosage: 2 DF, PRN (AS NECESSARY)
     Route: 065
     Dates: start: 20190305
  4. SCOPODERM                          /00008701/ [Concomitant]
     Active Substance: SCOPOLAMINE
     Indication: PRODUCT USED FOR UNKNOWN INDICATION
     Dosage: 1 DF, APPLY EVERY 72 HOURS
     Route: 065
     Dates: start: 20190501, end: 20190507
  5. BACTROBAN                          /00753902/ [Concomitant]
     Indication: PRODUCT USED FOR UNKNOWN INDICATION
     Dosage: UNK; APPLY 2-3 TIMES/DAY
     Route: 065
     Dates: start: 20190507, end: 20190508
  6. BISOPROLOL [Concomitant]
     Active Substance: BISOPROLOL
     Indication: PRODUCT USED FOR UNKNOWN INDICATION
     Dosage: 1 DF, OD
     Route: 065
     Dates: start: 20190305
  7. CO-DYDRAMOL [Concomitant]
     Active Substance: ACETAMINOPHEN\DIHYDROCODEINE
     Indication: PRODUCT USED FOR UNKNOWN INDICATION
     Dosage: UNK; TAKE 1 OR 2 4 TIMES/DAY
     Route: 065
     Dates: start: 20190305
  8. MONTELUKAST SODIUM. [Suspect]
     Active Substance: MONTELUKAST SODIUM
     Indication: PRODUCT USED FOR UNKNOWN INDICATION
     Dosage: 10 MG, HS (AT NIGHT)
     Route: 065
     Dates: start: 20190305
  9. BUDESONIDE. [Concomitant]
     Active Substance: BUDESONIDE
     Indication: PRODUCT USED FOR UNKNOWN INDICATION
     Dosage: 2 DF, OD
     Route: 065
     Dates: start: 20190305
  10. FEXOFENADINE [Concomitant]
     Active Substance: FEXOFENADINE HYDROCHLORIDE
     Indication: PRODUCT USED FOR UNKNOWN INDICATION
     Dosage: 1 DF, OD
     Route: 065
     Dates: start: 20190305
  11. ISOSORBIDE MONONITRATE. [Concomitant]
     Active Substance: ISOSORBIDE MONONITRATE
     Indication: PRODUCT USED FOR UNKNOWN INDICATION
     Dosage: 1 DF, BID (TAKE ONE TWICE DAILY)
     Route: 065
     Dates: start: 20190305
  12. DAPSONE. [Concomitant]
     Active Substance: DAPSONE
     Indication: PRODUCT USED FOR UNKNOWN INDICATION
     Dosage: 1 DF, OD
     Route: 065
     Dates: start: 20190710
  13. CO-AMOXICLAV                       /00756801/ [Concomitant]
     Active Substance: AMOXICILLIN\CLAVULANIC ACID
     Indication: PRODUCT USED FOR UNKNOWN INDICATION
     Dosage: 3 DF, OD
     Route: 065
     Dates: start: 20190614, end: 20190621
  14. ATORVASTATIN [Concomitant]
     Active Substance: ATORVASTATIN
     Indication: PRODUCT USED FOR UNKNOWN INDICATION
     Dosage: 1 DF, OD
     Route: 065
     Dates: start: 20190305
  15. CITALOPRAM [Concomitant]
     Active Substance: CITALOPRAM HYDROBROMIDE
     Indication: PRODUCT USED FOR UNKNOWN INDICATION
     Dosage: 1 DF, OD
     Route: 065
     Dates: start: 20190625, end: 20190626
  16. LANSOPRAZOLE. [Concomitant]
     Active Substance: LANSOPRAZOLE
     Indication: PRODUCT USED FOR UNKNOWN INDICATION
     Dosage: 1 DF, OD
     Route: 065
     Dates: start: 20190305
  17. FLUTICASONE FUROATE [Concomitant]
     Active Substance: FLUTICASONE FUROATE
     Indication: PRODUCT USED FOR UNKNOWN INDICATION
     Dosage: 1 DF, OD (USE ONCE DAILY)
     Route: 065
     Dates: start: 20190305
  18. FLUCLOXACILLIN [Concomitant]
     Active Substance: FLUCLOXACILLIN
     Indication: PRODUCT USED FOR UNKNOWN INDICATION
     Dosage: 4 DF, OD
     Route: 065
     Dates: start: 20190507, end: 20190514
  19. COMBODART [Concomitant]
     Active Substance: DUTASTERIDE\TAMSULOSIN
     Indication: PRODUCT USED FOR UNKNOWN INDICATION
     Dosage: 1 DF, OD
     Route: 065
     Dates: start: 20190305
  20. NITROMIN                           /00003201/ [Concomitant]
     Indication: PRODUCT USED FOR UNKNOWN INDICATION
     Dosage: 1 DF, PRN (AS NECESSARY)
     Route: 065
     Dates: start: 20190305

REACTIONS (1)
  - Nightmare [Recovered/Resolved]

NARRATIVE: CASE EVENT DATE: 20190718
